FAERS Safety Report 17336612 (Version 3)
Quarter: 2020Q1

REPORT INFORMATION
  Report Type: Spontaneous
  Country: US (occurrence: US)
  Receive Date: 20200128
  Receipt Date: 20200304
  Transmission Date: 20200409
  Serious: Yes (Hospitalization)
  Sender: FDA-Public Use
  Company Number: US-VERTEX PHARMACEUTICALS-2020-001145

PATIENT
  Age: 29 Year
  Sex: Male
  Weight: 48 kg

DRUGS (1)
  1. TRIKAFTA [Suspect]
     Active Substance: ELEXACAFTOR\IVACAFTOR\TEZACAFTOR
     Indication: CYSTIC FIBROSIS
     Dosage: 100MG ELEXACAFTOR/50MGTEZACAFTOR/75MG IVACAFTOR) AM; (150MG IVACAFTOR) PM
     Route: 048
     Dates: start: 20191205

REACTIONS (1)
  - Coeliac disease [Recovered/Resolved]

NARRATIVE: CASE EVENT DATE: 202001
